FAERS Safety Report 16052559 (Version 3)
Quarter: 2019Q2

REPORT INFORMATION
  Report Type: Spontaneous
  Country: US (occurrence: US)
  Receive Date: 20190308
  Receipt Date: 20190503
  Transmission Date: 20190711
  Serious: Yes (Disabling, Other)
  Sender: FDA-Public Use
  Company Number: US-ASTRAZENECA-2019SE36579

PATIENT
  Age: 22126 Day
  Sex: Female
  Weight: 83 kg

DRUGS (2)
  1. ZOMIG [Suspect]
     Active Substance: ZOLMITRIPTAN
     Indication: MIGRAINE
     Dosage: 5.0MG AS REQUIRED
     Route: 048
  2. ZOMIG [Suspect]
     Active Substance: ZOLMITRIPTAN
     Indication: HEADACHE
     Dosage: 5.0MG AS REQUIRED
     Route: 048

REACTIONS (2)
  - Headache [Unknown]
  - Multiple sclerosis relapse [Recovering/Resolving]

NARRATIVE: CASE EVENT DATE: 20190226
